FAERS Safety Report 14120604 (Version 2)
Quarter: 2020Q3

REPORT INFORMATION
  Report Type: Report from Study
  Country: KR (occurrence: KR)
  Receive Date: 20171024
  Receipt Date: 20171030
  Transmission Date: 20201104
  Serious: Yes (Hospitalization, Other)
  Sender: FDA-Public Use
  Company Number: KR-PFIZER INC-2017413096

PATIENT
  Age: 57 Year
  Sex: Male

DRUGS (12)
  1. TREMELIMUMAB. [Suspect]
     Active Substance: TREMELIMUMAB
     Indication: SMALL CELL LUNG CANCER
     Dosage: UNK, CYCLIC
     Route: 042
     Dates: start: 20170913
  2. TRAJENTA [Concomitant]
     Active Substance: LINAGLIPTIN
     Indication: DIABETES MELLITUS
     Dosage: 5 MG, 1X/DAY
     Route: 048
     Dates: start: 201301
  3. LIDOMEX [Concomitant]
     Active Substance: PREDNISOLONE VALERATE ACETATE
     Indication: ECZEMA
     Dosage: UNK
     Route: 061
     Dates: start: 20170904
  4. CARBOPLATIN. [Suspect]
     Active Substance: CARBOPLATIN
     Indication: SMALL CELL LUNG CANCER
     Dosage: UNK, CYCLIC
     Route: 042
     Dates: start: 20170913
  5. MOKTIN [Concomitant]
     Indication: PRODUCTIVE COUGH
     Dosage: 200 MG, 3X/DAY
     Route: 048
     Dates: start: 20170829, end: 20170919
  6. MEDI4736 [Suspect]
     Active Substance: DURVALUMAB
     Indication: SMALL CELL LUNG CANCER
     Dosage: UNK, CYCLIC
     Route: 042
     Dates: start: 20170913
  7. TARGIN CR [Concomitant]
     Active Substance: NALOXONE HYDROCHLORIDE\OXYCODONE HYDROCHLORIDE
     Indication: NON-CARDIAC CHEST PAIN
     Dosage: 1 DF, 2X/DAY
     Route: 048
     Dates: start: 20170828, end: 20170919
  8. AZEPTIN [Concomitant]
     Active Substance: AZELASTINE HYDROCHLORIDE
     Indication: ECZEMA
     Dosage: 1 MG, 2X/DAY
     Route: 048
     Dates: start: 20170826
  9. MATRIFEN [Concomitant]
     Active Substance: FENTANYL
     Indication: NON-CARDIAC CHEST PAIN
     Dosage: 12 UG, UNK
     Route: 062
     Dates: start: 20170831
  10. ETOPOSIDE. [Suspect]
     Active Substance: ETOPOSIDE
     Indication: SMALL CELL LUNG CANCER
     Dosage: UNK, CYCLIC
     Route: 065
     Dates: start: 20170913
  11. GLUPA [Concomitant]
     Active Substance: METFORMIN HYDROCHLORIDE
     Indication: DIABETES MELLITUS
     Dosage: 250 MG, 2X/DAY
     Route: 048
     Dates: start: 201301
  12. LIDOMEX [Concomitant]
     Active Substance: PREDNISOLONE VALERATE ACETATE
     Indication: DERMATITIS EXFOLIATIVE GENERALISED

REACTIONS (4)
  - Neutrophil count decreased [Recovered/Resolved]
  - Cholangitis [Not Recovered/Not Resolved]
  - Second primary malignancy [Not Recovered/Not Resolved]
  - Pancreatic carcinoma [Not Recovered/Not Resolved]

NARRATIVE: CASE EVENT DATE: 20170920
